FAERS Safety Report 13930800 (Version 1)
Quarter: 2017Q3

REPORT INFORMATION
  Report Type: Spontaneous
  Country: FR (occurrence: FR)
  Receive Date: 20170901
  Receipt Date: 20170901
  Transmission Date: 20171127
  Serious: Yes (Other)
  Sender: FDA-Public Use
  Company Number: FR-MERCK KGAA-2025489

PATIENT
  Sex: Female

DRUGS (1)
  1. NOVOTHYROX [Suspect]
     Active Substance: LEVOTHYROXINE SODIUM
     Indication: THYROID CANCER
     Dates: start: 201705

REACTIONS (9)
  - Hepatic function abnormal [Unknown]
  - Weight increased [Unknown]
  - Suicidal ideation [Unknown]
  - Palpitations [Unknown]
  - Somnolence [Unknown]
  - Pain [Unknown]
  - Gait inability [Unknown]
  - Alopecia [Not Recovered/Not Resolved]
  - Fatigue [Unknown]
